FAERS Safety Report 12876714 (Version 1)
Quarter: 2016Q4

REPORT INFORMATION
  Report Type: Spontaneous
  Country: FR (occurrence: FR)
  Receive Date: 20161024
  Receipt Date: 20161024
  Transmission Date: 20170207
  Serious: Yes (Other)
  Sender: FDA-Public Use
  Company Number: FR-BAYER-2016-201440

PATIENT
  Age: 0 Year
  Sex: Female

DRUGS (1)
  1. JAYDESS [Suspect]
     Active Substance: LEVONORGESTREL
     Dosage: UNK
     Route: 064
     Dates: start: 2015, end: 20151207

REACTIONS (3)
  - Foetal exposure during pregnancy [None]
  - Low birth weight baby [None]
  - Foetal growth restriction [None]

NARRATIVE: CASE EVENT DATE: 2015
